FAERS Safety Report 8954151 (Version 1)
Quarter: 2012Q4

REPORT INFORMATION
  Report Type: 
  Country: US (occurrence: US)
  Receive Date: 20121207
  Receipt Date: 20121207
  Transmission Date: 20130627
  Serious: Yes (Hospitalization)
  Sender: FDA-Public Use
  Company Number: US-BAYER-2012-127906

PATIENT
  Age: 40 Year
  Sex: Female
  Weight: 88.44 kg

DRUGS (2)
  1. YASMIN [Suspect]
     Indication: CONTRACEPTION
     Dosage: UNK
     Dates: start: 200305, end: 200607
  2. CEPHALEXIN [Concomitant]
     Dosage: 500 mg, QID

REACTIONS (6)
  - Embolic stroke [None]
  - Hypoaesthesia [None]
  - Muscular weakness [None]
  - Speech disorder [None]
  - Hypoaesthesia [None]
  - Muscular weakness [None]
